FAERS Safety Report 17860978 (Version 1)
Quarter: 2020Q2

REPORT INFORMATION
  Report Type: Spontaneous
  Country: CA (occurrence: CA)
  Receive Date: 20200604
  Receipt Date: 20200604
  Transmission Date: 20200714
  Serious: Yes (Other)
  Sender: FDA-Public Use
  Company Number: CA-SA-2020SA133095

PATIENT

DRUGS (1)
  1. LEFLUNOMIDE. [Suspect]
     Active Substance: LEFLUNOMIDE
     Dosage: UNK
     Route: 065

REACTIONS (2)
  - Rash [Unknown]
  - Rheumatoid arthritis [Unknown]
